FAERS Safety Report 19591546 (Version 1)
Quarter: 2021Q3

REPORT INFORMATION
  Report Type: Spontaneous
  Country: IT (occurrence: IT)
  Receive Date: 20210721
  Receipt Date: 20210721
  Transmission Date: 20211014
  Serious: Yes (Other)
  Sender: FDA-Public Use
  Company Number: NVSC2021IT113341

PATIENT
  Age: 10 Month
  Sex: Female
  Weight: 8.87 kg

DRUGS (3)
  1. ZOLGENSMA [Suspect]
     Active Substance: ONASEMNOGENE ABEPARVOVEC-XIOI
     Indication: SPINAL MUSCULAR ATROPHY
     Dosage: 49.5 ML, ONCE/SINGLE (TOTAL)
     Route: 042
     Dates: start: 20210506, end: 20210506
  2. LANSOPRAZOLE. [Concomitant]
     Active Substance: LANSOPRAZOLE
     Indication: PRODUCT USED FOR UNKNOWN INDICATION
     Dosage: 10 MG, PER DAY
     Route: 065
     Dates: start: 20210505, end: 20210531
  3. LANSOPRAZOLE. [Concomitant]
     Active Substance: LANSOPRAZOLE
     Dosage: 15 MG, PER DAY
     Route: 065
     Dates: start: 20210601

REACTIONS (4)
  - Vomiting [Unknown]
  - Nausea [Unknown]
  - Hypertransaminasaemia [Not Recovered/Not Resolved]
  - Thrombocytopenia [Not Recovered/Not Resolved]

NARRATIVE: CASE EVENT DATE: 20210510
